FAERS Safety Report 6707405-4 (Version None)
Quarter: 2010Q2

REPORT INFORMATION
  Report Type: 
  Country: None (occurrence: None)
  Receive Date: 20100503
  Receipt Date: 20090610
  Transmission Date: 20101027
  Serious: No
  Sender: FDA-Public Use
  Company Number: US-ASTRAZENECA-2009UW14845

PATIENT
  Sex: Female
  Weight: 64.4 kg

DRUGS (3)
  1. NEXIUM [Suspect]
     Indication: GASTROOESOPHAGEAL REFLUX DISEASE
     Route: 048
     Dates: start: 19980101
  2. METHYLCOBALAMIN SL [Concomitant]
  3. CYANOCOBALAMIN [Concomitant]

REACTIONS (5)
  - BLOOD IRON DECREASED [None]
  - CHEST PAIN [None]
  - FATIGUE [None]
  - VOCAL CORD DISORDER [None]
  - WEIGHT INCREASED [None]
